FAERS Safety Report 18735013 (Version 1)
Quarter: 2021Q1

REPORT INFORMATION
  Report Type: Spontaneous
  Country: US (occurrence: US)
  Receive Date: 20210113
  Receipt Date: 20210113
  Transmission Date: 20210419
  Serious: Yes (Death, Other)
  Sender: FDA-Public Use
  Company Number: US-GRANULES-US-2021GRASPO00015

PATIENT
  Sex: Male

DRUGS (2)
  1. ZANTAC [Suspect]
     Active Substance: RANITIDINE HYDROCHLORIDE
     Indication: PRODUCT USED FOR UNKNOWN INDICATION
     Route: 065
     Dates: start: 200101, end: 201808
  2. RANITIDINE(PLAIN) [Suspect]
     Active Substance: RANITIDINE HYDROCHLORIDE
     Indication: PRODUCT USED FOR UNKNOWN INDICATION
     Route: 065
     Dates: start: 200101, end: 201808

REACTIONS (8)
  - Oesophageal carcinoma [Fatal]
  - Gastric cancer [Fatal]
  - Throat cancer [Fatal]
  - Lung neoplasm malignant [Fatal]
  - Brain neoplasm malignant [Fatal]
  - Bone cancer [Fatal]
  - Hepatic cancer [Fatal]
  - Nasal cavity cancer [Fatal]

NARRATIVE: CASE EVENT DATE: 201811
